FAERS Safety Report 4693591-7 (Version None)
Quarter: 2005Q2

REPORT INFORMATION
  Report Type: 
  Country: None (occurrence: None)
  Receive Date: 20050615
  Receipt Date: 20050603
  Transmission Date: 20051028
  Serious: Yes (Hospitalization)
  Sender: FDA-Public Use
  Company Number: HQWYE345924MAR05

PATIENT
  Age: 26 Year
  Sex: Female

DRUGS (1)
  1. RAPAMUNE [Suspect]
     Indication: PROPHYLAXIS AGAINST TRANSPLANT REJECTION
     Dosage: 2 MG 1X PER 1 DAY
     Route: 048
     Dates: start: 20030423, end: 20050315

REACTIONS (5)
  - BODY TEMPERATURE INCREASED [None]
  - CYSTITIS [None]
  - NEPHROTIC SYNDROME [None]
  - THERAPEUTIC RESPONSE DECREASED [None]
  - TRANSPLANT REJECTION [None]
